FAERS Safety Report 15861306 (Version 2)
Quarter: 2019Q1

REPORT INFORMATION
  Report Type: Report from Study
  Country: NL (occurrence: NL)
  Receive Date: 20190124
  Receipt Date: 20190205
  Transmission Date: 20190417
  Serious: Yes (Hospitalization)
  Sender: FDA-Public Use
  Company Number: NL-TOLMAR, INC.-2019NL000631

PATIENT

DRUGS (1)
  1. ELIGARD [Suspect]
     Active Substance: LEUPROLIDE ACETATE
     Indication: PROSTATE CANCER
     Dosage: 22.5 MG, Q3MONTHS
     Route: 058
     Dates: start: 20181030

REACTIONS (8)
  - Hydronephrosis [Recovering/Resolving]
  - Gait inability [Recovering/Resolving]
  - Spinal cord disorder [Recovering/Resolving]
  - Sensory loss [Recovering/Resolving]
  - Metastases to liver [Recovering/Resolving]
  - Spinal cord abscess [Recovering/Resolving]
  - Escherichia bacteraemia [Recovering/Resolving]
  - Pulmonary embolism [Recovering/Resolving]

NARRATIVE: CASE EVENT DATE: 20181123
